FAERS Safety Report 10897735 (Version 1)
Quarter: 2015Q1

REPORT INFORMATION
  Report Type: Spontaneous
  Country: FR (occurrence: FR)
  Receive Date: 20150309
  Receipt Date: 20150309
  Transmission Date: 20150721
  Serious: Yes (Other)
  Sender: FDA-Public Use
  Company Number: FR-WATSON-2015-04369

PATIENT
  Age: 32 Year
  Sex: Female

DRUGS (2)
  1. CLARITHROMYCIN (UNKNOWN) [Suspect]
     Active Substance: CLARITHROMYCIN
     Indication: MYCOBACTERIUM ULCERANS INFECTION
     Dosage: 1.5 G, DAILY
     Route: 048
  2. RIFAMPICIN (UNKNOWN) [Suspect]
     Active Substance: RIFAMPIN
     Indication: MYCOBACTERIUM ULCERANS INFECTION
     Dosage: 600 MG, DAILY
     Route: 048

REACTIONS (3)
  - Paradoxical drug reaction [Recovered/Resolved]
  - Mycobacterium ulcerans infection [Recovered/Resolved]
  - Condition aggravated [Recovered/Resolved]
